FAERS Safety Report 8174129-9 (Version None)
Quarter: 2012Q1

REPORT INFORMATION
  Report Type: 
  Country: None (occurrence: None)
  Receive Date: 20120229
  Receipt Date: 20120214
  Transmission Date: 20120608
  Serious: Yes (Hospitalization)
  Sender: FDA-Public Use
  Company Number: FR-ROCHE-1025900

PATIENT
  Sex: Male
  Weight: 81 kg

DRUGS (11)
  1. NEXIUM [Concomitant]
     Route: 048
     Dates: start: 20111130
  2. DEXAMETHASONE [Suspect]
     Indication: MANTLE CELL LYMPHOMA
     Dosage: FIRST CYCLE
  3. VALACYCLOVIR HYDROCHLORIDE [Concomitant]
     Route: 048
     Dates: start: 20110913
  4. MABTHERA [Suspect]
     Dosage: 4TH CYCLE
     Route: 041
     Dates: start: 20111125
  5. CISPLATIN [Suspect]
     Indication: MANTLE CELL LYMPHOMA
     Dosage: FIRST CYCLE
     Dates: start: 20110920
  6. CISPLATIN [Suspect]
     Dosage: FOURTH CYCLE
     Route: 042
     Dates: start: 20111125
  7. CYTARABINE [Suspect]
     Indication: MANTLE CELL LYMPHOMA
     Dosage: FIRST CYCLE
     Dates: start: 20110920
  8. CYTARABINE [Suspect]
     Dosage: FOURTH CYCLE
     Route: 042
     Dates: start: 20111125
  9. CYTARABINE [Suspect]
     Dates: start: 20111126
  10. MABTHERA [Suspect]
     Indication: MANTLE CELL LYMPHOMA
     Dosage: FIRST CYCLE
     Dates: start: 20110920
  11. DEXAMETHASONE [Suspect]
     Dosage: 80 MG DAY 1,40 MG DAY 2 AMD 4, FOURTH CYCLE
     Route: 042
     Dates: start: 20111125, end: 20111128

REACTIONS (1)
  - DEEP VEIN THROMBOSIS [None]
